FAERS Safety Report 6823159-5 (Version None)
Quarter: 2010Q3

REPORT INFORMATION
  Report Type: 
  Country: None (occurrence: None)
  Receive Date: 20100708
  Receipt Date: 20070702
  Transmission Date: 20110219
  Serious: Yes (Hospitalization)
  Sender: FDA-Public Use
  Company Number: FR-WYE-G06352310

PATIENT
  Sex: Male

DRUGS (4)
  1. ADVIL LIQUI-GELS [Suspect]
     Indication: HEADACHE
     Dosage: UNKNOWN
     Route: 048
     Dates: end: 20100501
  2. PLAVIX [Suspect]
     Dosage: UNKNOWN
     Route: 048
  3. NOCTRAN 10 [Concomitant]
     Dosage: UNKNOWN
     Route: 048
     Dates: end: 20100501
  4. TARDYFERON [Concomitant]
     Dosage: UNKNOWN
     Route: 048
     Dates: end: 20100501

REACTIONS (4)
  - FALL [None]
  - GASTRITIS HAEMORRHAGIC [None]
  - HAEMATEMESIS [None]
  - LOSS OF CONSCIOUSNESS [None]
